FAERS Safety Report 19232201 (Version 1)
Quarter: 2021Q2

REPORT INFORMATION
  Report Type: Spontaneous
  Country: CH (occurrence: CH)
  Receive Date: 20210507
  Receipt Date: 20210507
  Transmission Date: 20210717
  Serious: Yes (Other)
  Sender: FDA-Public Use
  Company Number: CH-MEDICURE INC.-2110347

PATIENT
  Age: 41 Year

DRUGS (1)
  1. AGGRASTAT [Suspect]
     Active Substance: TIROFIBAN HYDROCHLORIDE
     Indication: OFF LABEL USE
     Route: 040

REACTIONS (2)
  - Conjunctival haemorrhage [Recovered/Resolved]
  - Vision blurred [Recovered/Resolved]
